FAERS Safety Report 22320643 (Version 1)
Quarter: 2023Q2

REPORT INFORMATION
  Report Type: Report from Study
  Country: NL (occurrence: NL)
  Receive Date: 20230515
  Receipt Date: 20230515
  Transmission Date: 20230721
  Serious: Yes (Other)
  Sender: FDA-Public Use
  Company Number: NL-VER-202300047

PATIENT
  Sex: Male

DRUGS (1)
  1. TRIPTORELIN PAMOATE [Suspect]
     Active Substance: TRIPTORELIN PAMOATE
     Indication: Prostate cancer
     Dosage: OTHER USED BATCH NUMBERS WERE  U05301, W28127 AND EXPIRY DATES WERE FEB-2023, JAN-2025 RESPECTIVELY.
     Route: 030

REACTIONS (1)
  - Cholelithiasis [Recovering/Resolving]
